FAERS Safety Report 22243218 (Version 1)
Quarter: 2023Q2

REPORT INFORMATION
  Report Type: Spontaneous
  Country: DE (occurrence: DE)
  Receive Date: 20230424
  Receipt Date: 20230424
  Transmission Date: 20230721
  Serious: Yes (Other)
  Sender: FDA-Public Use
  Company Number: DE-GSKCCFEMEA-Case-01712666_AE-69796

PATIENT

DRUGS (1)
  1. FLUTICASONE FUROATE [Suspect]
     Active Substance: FLUTICASONE FUROATE
     Indication: Rhinitis
     Dosage: UNK, QD , 1 SPRAY IN THE MORNING

REACTIONS (5)
  - Adrenal insufficiency [Unknown]
  - Hormone level abnormal [Unknown]
  - Vitamin D deficiency [Unknown]
  - Cardiovascular disorder [Unknown]
  - Fatigue [Unknown]
